FAERS Safety Report 6988802-9 (Version None)
Quarter: 2010Q3

REPORT INFORMATION
  Report Type: 
  Country: None (occurrence: None)
  Receive Date: 20100916
  Receipt Date: 20100910
  Transmission Date: 20110219
  Serious: Yes (Other)
  Sender: FDA-Public Use
  Company Number: HQWYE519811JAN05

PATIENT
  Sex: Female

DRUGS (3)
  1. PREMARIN [Suspect]
     Dosage: UNKNOWN
     Route: 048
     Dates: start: 19890201, end: 20030101
  2. MEDROXYPROGESTERONE ACETATE [Suspect]
  3. PROVERA [Suspect]
     Dosage: UNKNOWN
     Dates: start: 19890201, end: 20030101

REACTIONS (1)
  - BREAST CANCER METASTATIC [None]
